FAERS Safety Report 22273471 (Version 1)
Quarter: 2023Q2

REPORT INFORMATION
  Report Type: Spontaneous
  Country: US (occurrence: US)
  Receive Date: 20230502
  Receipt Date: 20230502
  Transmission Date: 20230722
  Serious: No
  Sender: FDA-Public Use
  Company Number: US-VIIV HEALTHCARE LIMITED-US2023AMR058938

PATIENT
  Age: 33 Year
  Sex: Female

DRUGS (4)
  1. RILPIVIRINE [Suspect]
     Active Substance: RILPIVIRINE
     Indication: HIV infection CDC category A
     Route: 065
  2. CABOTEGRAVIR [Suspect]
     Active Substance: CABOTEGRAVIR
     Indication: HIV infection CDC category A
     Route: 065
  3. VOCABRIA [Concomitant]
     Active Substance: CABOTEGRAVIR SODIUM
     Indication: Product used for unknown indication
     Dosage: DRUG START PERIOD 70  (DAYS), 2 DRUG LAST PERIOD 44 (DAYS)
     Route: 048
     Dates: start: 20220909, end: 20221005
  4. EDURANT [Concomitant]
     Active Substance: RILPIVIRINE HYDROCHLORIDE
     Indication: Product used for unknown indication
     Dosage: DRUG START PERIOD 70  (DAYS) DRUG LAST PERIOD 44 (DAYS)
     Route: 048
     Dates: start: 20220909, end: 20221005

REACTIONS (1)
  - Viral load increased [Unknown]

NARRATIVE: CASE EVENT DATE: 20221118
